FAERS Safety Report 10225970 (Version 2)
Quarter: 2014Q2

REPORT INFORMATION
  Report Type: Spontaneous
  Country: US (occurrence: US)
  Receive Date: 20140609
  Receipt Date: 20140609
  Transmission Date: 20141212
  Serious: Yes (Hospitalization, Other)
  Sender: FDA-Public Use
  Company Number: US-ASTELLAS-2011US005946

PATIENT
  Age: 64 Year
  Sex: Female

DRUGS (6)
  1. PROGRAF [Suspect]
     Indication: RENAL AND LIVER TRANSPLANT
     Dosage: 5 MG, UID/QD (3 TABLETS IN AM NAD 2 TABLETS IN PM)
     Route: 048
     Dates: start: 20070125
  2. CELLCEPT [Concomitant]
     Indication: RENAL TRANSPLANT
     Route: 048
     Dates: start: 20070125
  3. ESTRADIOL [Concomitant]
     Indication: HORMONE REPLACEMENT THERAPY
     Route: 065
     Dates: start: 1978
  4. NOVOLOG [Concomitant]
     Indication: DIABETES MELLITUS
     Route: 065
     Dates: start: 2009
  5. VITAMIN B12 NOS [Concomitant]
     Indication: VITAMIN SUPPLEMENTATION
     Route: 065
     Dates: start: 20070125
  6. MYFORTIC [Concomitant]
     Indication: RENAL AND LIVER TRANSPLANT
     Route: 048

REACTIONS (3)
  - Infection [Recovered/Resolved]
  - Pneumonia [Recovered/Resolved]
  - Asthenia [Unknown]
